FAERS Safety Report 7069706-2 (Version None)
Quarter: 2010Q4

REPORT INFORMATION
  Report Type: 
  Country: None (occurrence: None)
  Receive Date: 20101028
  Receipt Date: 20100630
  Transmission Date: 20110411
  Serious: No
  Sender: FDA-Public Use
  Company Number: US-WYE-H15078310

PATIENT
  Age: 50 Year
  Sex: Female
  Weight: 81.72 kg

DRUGS (2)
  1. ADVIL [Suspect]
     Indication: HEADACHE
     Dosage: 2 CAPLETS ONCE
     Route: 048
     Dates: start: 20100504, end: 20100504
  2. ADVIL [Suspect]
     Indication: ARTHRITIS

REACTIONS (2)
  - CHOKING [None]
  - DRUG INEFFECTIVE [None]
